FAERS Safety Report 9049226 (Version 1)
Quarter: 2013Q1

REPORT INFORMATION
  Report Type: Spontaneous
  Country: US (occurrence: None)
  Receive Date: 20130130
  Receipt Date: 20130130
  Transmission Date: 20140127
  Serious: Yes (Other)
  Sender: FDA-Public Use
  Company Number: None

PATIENT
  Age: 65 Year
  Sex: Female
  Weight: 56.7 kg

DRUGS (1)
  1. IRBESARTAN 300 MG [Suspect]
     Indication: HYPERTENSION
     Route: 048
     Dates: start: 20121114, end: 20121205

REACTIONS (3)
  - Blood pressure increased [None]
  - Dry mouth [None]
  - Product substitution issue [None]
